FAERS Safety Report 19475825 (Version 1)
Quarter: 2021Q2

REPORT INFORMATION
  Report Type: Other
  Country: JP (occurrence: JP)
  Receive Date: 20210630
  Receipt Date: 20210630
  Transmission Date: 20210717
  Serious: Yes (Hospitalization)
  Sender: FDA-Public Use
  Company Number: JP-ROCHE-2819075

PATIENT
  Age: 63 Year
  Sex: Male
  Weight: 52.6 kg

DRUGS (8)
  1. CARBOPLATIN. [Suspect]
     Active Substance: CARBOPLATIN
     Indication: LUNG ADENOCARCINOMA
     Dosage: DOSAGE: 504 (UNIT UNCERTAINTY) AND DOSE INTERVAL UNCERTAINTY
     Route: 041
     Dates: start: 20210226, end: 20210226
  2. ATEZOLIZUMAB. [Suspect]
     Active Substance: ATEZOLIZUMAB
     Indication: LUNG ADENOCARCINOMA
     Dosage: DOSAGE: 1200 (UNIT UNCERTAINTY) AND DOSE INTERVAL UNCERTAINTY
     Route: 041
     Dates: start: 20210226, end: 20210226
  3. BEVACIZUMAB. [Suspect]
     Active Substance: BEVACIZUMAB
     Indication: LUNG ADENOCARCINOMA
     Dosage: DOSAGE: 827 (UNIT UNCERTAINTY) AND DOSE INTERVAL UNCERTAINTY
     Route: 041
     Dates: start: 20210226, end: 20210226
  4. PACLITAXEL. [Suspect]
     Active Substance: PACLITAXEL
     Indication: LUNG ADENOCARCINOMA
     Dosage: DOSAGE: 320 (UNIT UNCERTAINTY) AND DOSE INTERVAL UNCERTAINTY
     Route: 041
     Dates: start: 20210226, end: 20210226
  5. PACLITAXEL. [Suspect]
     Active Substance: PACLITAXEL
     Dosage: 320 WITH UNKNOWN UNIT, ONCE/3WEEKS
     Route: 041
     Dates: start: 20210324
  6. ATEZOLIZUMAB. [Suspect]
     Active Substance: ATEZOLIZUMAB
     Dosage: 1200 WITH UNKNOWN UNIT
     Route: 041
     Dates: start: 20210324
  7. BEVACIZUMAB. [Suspect]
     Active Substance: BEVACIZUMAB
     Dosage: 827 WITH UNKNOWN UNIT, ONCE/3WEEKS
     Route: 041
     Dates: start: 20210324
  8. CARBOPLATIN. [Suspect]
     Active Substance: CARBOPLATIN
     Dosage: 504 WITH UNKNOWN UNIT, ONCE/3WEEKS
     Route: 041
     Dates: start: 20210324

REACTIONS (4)
  - Decreased appetite [Unknown]
  - Embolism [Not Recovered/Not Resolved]
  - Pneumonia [Not Recovered/Not Resolved]
  - Febrile neutropenia [Recovering/Resolving]

NARRATIVE: CASE EVENT DATE: 20210420
